FAERS Safety Report 4608970-3 (Version None)
Quarter: 2005Q1

REPORT INFORMATION
  Report Type: 
  Country: None (occurrence: None)
  Receive Date: 20050310
  Receipt Date: 20050217
  Transmission Date: 20050727
  Serious: Yes (Disabling)
  Sender: FDA-Public Use
  Company Number: 2005-CN-00485CN

PATIENT
  Age: 51 Year
  Sex: Female

DRUGS (1)
  1. MICARDIS HCT [Suspect]
     Indication: HYPERTENSION
     Dosage: 80 MG (80 MG, 1/DAY) PO
     Route: 048

REACTIONS (2)
  - MENORRHAGIA [None]
  - OEDEMA PERIPHERAL [None]
